FAERS Safety Report 9996520 (Version 1)
Quarter: 2014Q1

REPORT INFORMATION
  Report Type: Spontaneous
  Country: US (occurrence: US)
  Receive Date: 20140311
  Receipt Date: 20140311
  Transmission Date: 20141002
  Serious: No
  Sender: FDA-Public Use
  Company Number: US-009507513-1402USA009824

PATIENT
  Sex: Female

DRUGS (5)
  1. PEGINTRON [Suspect]
     Indication: CHRONIC HEPATITIS C
     Dosage: 0.5 ML, QW, INJECTION ROUTE
     Dates: start: 20131209
  2. REBETOL [Suspect]
     Dosage: 600 MG AM /400 MG PM, BID
     Route: 048
     Dates: start: 20131209
  3. TELAPREVIR [Suspect]
     Indication: CHRONIC HEPATITIS C
     Dosage: 2250 MG, TID
     Route: 048
     Dates: start: 20131209
  4. LYRICA [Concomitant]
     Dosage: DOSE 300MG AM/600MG PM
  5. OMEPRAZOLE [Concomitant]
     Dosage: DOSE 400 MG

REACTIONS (16)
  - Bone pain [Unknown]
  - Myalgia [Unknown]
  - Headache [Unknown]
  - Abdominal distension [Unknown]
  - Haemorrhoids [Unknown]
  - Abdominal pain [Unknown]
  - Insomnia [Unknown]
  - Eye pain [Unknown]
  - Visual acuity reduced [Unknown]
  - Photophobia [Unknown]
  - Pollakiuria [Unknown]
  - Rash [Unknown]
  - Hypoaesthesia [Unknown]
  - Muscle twitching [Unknown]
  - Pruritus [Unknown]
  - Injection site reaction [Unknown]
